FAERS Safety Report 4397566-7 (Version None)
Quarter: 2004Q3

REPORT INFORMATION
  Report Type: 
  Country: None (occurrence: None)
  Receive Date: 20040708
  Receipt Date: 20040625
  Transmission Date: 20050211
  Serious: Yes (Hospitalization)
  Sender: FDA-Public Use
  Company Number: 2004-DE-03534GD

PATIENT
  Age: 24 Year
  Sex: Female

DRUGS (1)
  1. CODEINE PHOSPHATE AND ACETAMINOPHEN [Suspect]
     Indication: HEADACHE
     Dosage: 500 MG PARACETAMOL + 20 MG CODEINE (SEE TEXT, ONCE), PO
     Route: 048

REACTIONS (1)
  - PANCREATITIS ACUTE [None]
